FAERS Safety Report 11109154 (Version 1)
Quarter: 2015Q2

REPORT INFORMATION
  Report Type: Spontaneous
  Country: US (occurrence: US)
  Receive Date: 20150513
  Receipt Date: 20150513
  Transmission Date: 20150821
  Serious: No
  Sender: FDA-Public Use
  Company Number: US-TEVA-561904ACC

PATIENT
  Age: 23 Year
  Sex: Female
  Weight: 65.83 kg

DRUGS (6)
  1. TAKE ACTION [Suspect]
     Active Substance: LEVONORGESTREL
     Route: 065
  2. LO LOESTRIN 24 [Concomitant]
     Indication: CONTRACEPTION
     Route: 065
  3. TAKE ACTION [Suspect]
     Active Substance: LEVONORGESTREL
     Route: 065
     Dates: start: 20150506, end: 20150506
  4. TAKE ACTION [Suspect]
     Active Substance: LEVONORGESTREL
     Indication: POST COITAL CONTRACEPTION
     Route: 065
  5. TAKE ACTION [Suspect]
     Active Substance: LEVONORGESTREL
     Route: 065
  6. TAKE ACTION [Suspect]
     Active Substance: LEVONORGESTREL
     Route: 065

REACTIONS (2)
  - Gastrooesophageal reflux disease [Not Recovered/Not Resolved]
  - Menorrhagia [Recovered/Resolved]

NARRATIVE: CASE EVENT DATE: 20150421
